FAERS Safety Report 19817341 (Version 1)
Quarter: 2021Q3

REPORT INFORMATION
  Report Type: Spontaneous
  Country: US (occurrence: US)
  Receive Date: 20210910
  Receipt Date: 20210910
  Transmission Date: 20211014
  Serious: No
  Sender: FDA-Public Use
  Company Number: US-3M-2020-US-018685

PATIENT
  Age: 83 Year
  Sex: Female
  Weight: 61.24 kg

DRUGS (5)
  1. AMLODIPINE [Concomitant]
     Active Substance: AMLODIPINE BESYLATE
  2. VITAMIN D3 [Concomitant]
     Active Substance: CHOLECALCIFEROL
  3. PERIDEX [Suspect]
     Active Substance: CHLORHEXIDINE GLUCONATE
     Indication: PRODUCT USED FOR UNKNOWN INDICATION
     Dosage: ONE TBS, RINSE AND SPIT OUT
     Route: 048
     Dates: start: 20200825, end: 20200904
  4. CALCIUM [Concomitant]
     Active Substance: CALCIUM
  5. UNSPECIFIED VITAMINS [Concomitant]
     Active Substance: VITAMINS

REACTIONS (4)
  - Taste disorder [Recovered/Resolved]
  - Oral pain [Recovering/Resolving]
  - Glossodynia [Recovering/Resolving]
  - Stomatitis [Recovering/Resolving]

NARRATIVE: CASE EVENT DATE: 20200825
